FAERS Safety Report 12807442 (Version 2)
Quarter: 2016Q4

REPORT INFORMATION
  Report Type: Report from Study
  Country: US (occurrence: US)
  Receive Date: 20161004
  Receipt Date: 20161108
  Transmission Date: 20170207
  Serious: Yes (Death, Hospitalization)
  Sender: FDA-Public Use
  Company Number: US-BAYER-2015-409945

PATIENT
  Age: 44 Year
  Sex: Female
  Weight: 119.73 kg

DRUGS (10)
  1. SILDENAFIL. [Concomitant]
     Active Substance: SILDENAFIL
  2. ADEMPAS [Suspect]
     Active Substance: RIOCIGUAT
     Indication: PULMONARY HYPERTENSION
     Dosage: 0.5 MG, TID (LAST SHIPPED 26-AUG-2015)
     Route: 048
  3. ADEMPAS [Suspect]
     Active Substance: RIOCIGUAT
     Indication: PULMONARY HYPERTENSION
     Dosage: 0.5 MG, TID
     Route: 048
  4. ADEMPAS [Suspect]
     Active Substance: RIOCIGUAT
     Indication: PULMONARY HYPERTENSION
     Dosage: 0.5 MG, TID (SHIPPED 03-DEC-2015)
     Route: 048
  5. TYVASO [Suspect]
     Active Substance: TREPROSTINIL
     Indication: PULMONARY HYPERTENSION
     Dosage: 18 -54MCG (3-9BREATHS) FOUR TIMES DAILY
     Route: 055
     Dates: start: 20140718
  6. ADCIRCA [Concomitant]
     Active Substance: TADALAFIL
     Dosage: UNK
  7. AMLODIPINE [Concomitant]
     Active Substance: AMLODIPINE BESYLATE
  8. ADEMPAS [Suspect]
     Active Substance: RIOCIGUAT
     Indication: PULMONARY HYPERTENSION
     Dosage: UNK
     Route: 048
     Dates: start: 20150616
  9. ADEMPAS [Suspect]
     Active Substance: RIOCIGUAT
     Indication: PULMONARY ARTERIAL HYPERTENSION
     Dosage: 0.5 MG, TID (LAST SHIPPED 16-JUN-2015)
     Route: 048
     Dates: end: 201508
  10. ADEMPAS [Suspect]
     Active Substance: RIOCIGUAT
     Indication: PULMONARY HYPERTENSION
     Dosage: 0.5 MG, TID
     Route: 048
     Dates: end: 20160706

REACTIONS (18)
  - Pneumonia [None]
  - Pneumonia [None]
  - Dyspnoea [Recovered/Resolved]
  - Nausea [Unknown]
  - Fluid retention [Unknown]
  - Dyspnoea [Recovered/Resolved]
  - Chest pain [None]
  - Viral infection [Recovered/Resolved]
  - Nausea [Unknown]
  - Cough [Unknown]
  - Asthenia [Recovered/Resolved]
  - Muscle spasms [Unknown]
  - Death [Fatal]
  - Fatigue [None]
  - Cough [Unknown]
  - Blood pressure decreased [Unknown]
  - Myocardial infarction [Unknown]
  - Arthralgia [Not Recovered/Not Resolved]

NARRATIVE: CASE EVENT DATE: 201507
